FAERS Safety Report 9167724 (Version 1)
Quarter: 2013Q1

REPORT INFORMATION
  Report Type: Spontaneous
  Country: GB (occurrence: None)
  Receive Date: 20130304
  Receipt Date: 20130304
  Transmission Date: 20140127
  Serious: No
  Sender: FDA-Public Use
  Company Number: THQ2013A01466

PATIENT
  Age: 70 Year
  Sex: Female

DRUGS (2)
  1. LANSOPRAZOLE (LANSOPRAZOLE) [Suspect]
     Indication: PRODUCT USED FOR UNKNOWN INDICATION
     Route: 048
     Dates: start: 20120424, end: 20120730
  2. PREDNISOLONE [Concomitant]

REACTIONS (2)
  - Abdominal pain upper [None]
  - Balance disorder [None]
